FAERS Safety Report 6140514-X (Version None)
Quarter: 2009Q1

REPORT INFORMATION
  Report Type: 
  Country: None (occurrence: None)
  Receive Date: 20090331
  Receipt Date: 20090316
  Transmission Date: 20090719
  Serious: Yes (Hospitalization)
  Sender: FDA-Public Use
  Company Number: 20090348

PATIENT
  Sex: Female
  Weight: 71 kg

DRUGS (3)
  1. OMEPRAZOLE [Suspect]
     Indication: GASTROOESOPHAGEAL REFLUX DISEASE
     Dosage: 20 MG ONCE A DAY, ORAL
     Route: 048
     Dates: start: 20090220, end: 20090226
  2. OMEPRAZOLE [Suspect]
     Indication: GASTROOESOPHAGEAL REFLUX DISEASE
     Dosage: 20 MG ONCE A DAY, ORAL
     Route: 048
     Dates: start: 20090228, end: 20090303
  3. PRILOSEC [Concomitant]

REACTIONS (9)
  - ARRHYTHMIA [None]
  - BLOOD PRESSURE SYSTOLIC INCREASED [None]
  - CHEST DISCOMFORT [None]
  - CHEST PAIN [None]
  - DYSPNOEA [None]
  - HEART RATE INCREASED [None]
  - HEART RATE IRREGULAR [None]
  - OXYGEN SATURATION DECREASED [None]
  - PALPITATIONS [None]
